FAERS Safety Report 8798678 (Version 1)
Quarter: 2012Q4

REPORT INFORMATION
  Report Type: 
  Country: US (occurrence: US)
  Receive Date: 20120917
  Receipt Date: 20120917
  Transmission Date: 20130627
  Serious: No
  Sender: FDA-Public Use
  Company Number: US-TEVA-359197USA

PATIENT
  Sex: Female
  Weight: 62.65 kg

DRUGS (17)
  1. NUVIGIL [Suspect]
     Indication: MULTIPLE SCLEROSIS
     Route: 048
  2. NUVIGIL [Suspect]
     Indication: FATIGUE
  3. COPAXONE [Concomitant]
     Dosage: 20 Milligram Daily;
  4. CALCIUM [Concomitant]
  5. BACLOFEN [Concomitant]
  6. ACYCLOVIR [Concomitant]
  7. OMEPRAZOLE [Concomitant]
  8. FLUOXETINE [Concomitant]
  9. POTASSIUM [Concomitant]
  10. LISINOPRIL [Concomitant]
  11. LIPITOR [Concomitant]
  12. ESTROTEST [Concomitant]
  13. DYRENIUM [Concomitant]
  14. EISOPROLOL FUMARATE [Concomitant]
  15. MILODIPINE [Concomitant]
  16. BISOPROLOL [Concomitant]
  17. PERCOCET [Concomitant]

REACTIONS (5)
  - Drug ineffective [Unknown]
  - Off label use [Unknown]
  - Rash [Unknown]
  - Pruritus [Unknown]
  - Rash macular [Unknown]
